FAERS Safety Report 5500873-5 (Version None)
Quarter: 2007Q4

REPORT INFORMATION
  Report Type: 
  Country: None (occurrence: None)
  Receive Date: 20071029
  Receipt Date: 20071018
  Transmission Date: 20080405
  Serious: Yes (Hospitalization)
  Sender: FDA-Public Use
  Company Number: US-JNJFOC-20071005015

PATIENT
  Sex: Female
  Weight: 49.9 kg

DRUGS (4)
  1. SPORANOX [Suspect]
     Route: 065
  2. SPORANOX [Suspect]
     Indication: FUNGUS CULTURE POSITIVE
     Route: 065
  3. BETAMETHASONE [Concomitant]
     Route: 065
  4. INHALERS [Concomitant]
     Route: 055

REACTIONS (2)
  - DISORIENTATION [None]
  - WEIGHT DECREASED [None]
